FAERS Safety Report 14515256 (Version 3)
Quarter: 2018Q4

REPORT INFORMATION
  Report Type: Spontaneous
  Country: US (occurrence: US)
  Receive Date: 20180210
  Receipt Date: 20181223
  Transmission Date: 20190204
  Serious: No
  Sender: FDA-Public Use
  Company Number: US-JNJFOC-20180136268

PATIENT
  Age: 21 Year
  Sex: Male

DRUGS (4)
  1. RISPERDAL [Suspect]
     Active Substance: RISPERIDONE
     Indication: PRODUCT USED FOR UNKNOWN INDICATION
     Route: 048
     Dates: start: 2010, end: 2011
  2. RISPERIDONE. [Suspect]
     Active Substance: RISPERIDONE
     Indication: BORDERLINE PERSONALITY DISORDER
     Route: 048
     Dates: start: 2010, end: 2011
  3. RISPERIDONE. [Suspect]
     Active Substance: RISPERIDONE
     Indication: ANXIETY
     Route: 048
     Dates: start: 2010, end: 2011
  4. RISPERIDONE. [Suspect]
     Active Substance: RISPERIDONE
     Indication: ATTENTION DEFICIT/HYPERACTIVITY DISORDER
     Route: 048
     Dates: start: 2010, end: 2011

REACTIONS (5)
  - Gynaecomastia [Unknown]
  - Product use in unapproved indication [Unknown]
  - Emotional distress [Unknown]
  - Therapy cessation [Unknown]
  - Off label use [Unknown]

NARRATIVE: CASE EVENT DATE: 2010
